FAERS Safety Report 8159285-0 (Version None)
Quarter: 2012Q1

REPORT INFORMATION
  Report Type: 
  Country: None (occurrence: None)
  Receive Date: 20120217
  Receipt Date: 20120206
  Transmission Date: 20120608
  Serious: Yes (Death, Other)
  Sender: FDA-Public Use
  Company Number: 2012P1004346

PATIENT
  Age: 72 Year
  Sex: Female

DRUGS (1)
  1. DEXAMETHASONE [Suspect]
     Indication: NON-HODGKIN'S LYMPHOMA
     Dosage: 32 MG;QD

REACTIONS (9)
  - FALL [None]
  - MULTI-ORGAN FAILURE [None]
  - CARDIAC VALVE VEGETATION [None]
  - TRAUMATIC HAEMATOMA [None]
  - ERYSIPELAS [None]
  - WOUND INFECTION STAPHYLOCOCCAL [None]
  - SEPSIS [None]
  - WOUND INFECTION PSEUDOMONAS [None]
  - AORTIC VALVE DISEASE [None]
